FAERS Safety Report 6710516-0 (Version None)
Quarter: 2010Q2

REPORT INFORMATION
  Report Type: 
  Country: None (occurrence: None)
  Receive Date: 20100504
  Receipt Date: 20091016
  Transmission Date: 20101027
  Serious: Yes (Other)
  Sender: FDA-Public Use
  Company Number: DE-BAYER-200930589GPV

PATIENT
  Age: 56 Year
  Sex: Male

DRUGS (2)
  1. LEVITRA [Suspect]
     Indication: DRUG USE FOR UNKNOWN INDICATION
     Dosage: 1 OR 2 TIMES PER WEEK, 1/4 TO 1/2 TABLET EACH
     Route: 048
     Dates: start: 20050101
  2. CIALIS [Suspect]
     Indication: DRUG USE FOR UNKNOWN INDICATION
     Dosage: 1 OR 2 TIMES PER WEEK, 1/4 TO 1/2 TABLET EACH
     Route: 048
     Dates: start: 20050101

REACTIONS (4)
  - MUSCLE ATROPHY [None]
  - NEURALGIA [None]
  - PARAESTHESIA [None]
  - VASCULITIS [None]
